FAERS Safety Report 7481295-7 (Version None)
Quarter: 2011Q2

REPORT INFORMATION
  Report Type: 
  Country: None (occurrence: None)
  Receive Date: 20110506
  Receipt Date: 20110422
  Transmission Date: 20111010
  Serious: Yes (Hospitalization)
  Sender: FDA-Public Use
  Company Number: AUR-APL-2011-00323

PATIENT
  Age: 84 Year
  Sex: Male
  Weight: 78.5 kg

DRUGS (16)
  1. NORVASC [Concomitant]
  2. CALCITRIOL [Concomitant]
  3. CHONDROITIN/GLUCOSAMINE [Concomitant]
  4. METOPROLOL TARTRATE [Suspect]
     Indication: HYPERTENSION
     Dosage: 12.5MG - BID - ORAL
     Route: 048
     Dates: start: 20090101
  5. IBANDRONATE [Concomitant]
  6. ASPIRIN [Concomitant]
  7. CALCIUM CARBONATE [Concomitant]
  8. VYTORIN [Concomitant]
  9. FERROUS SULFATE TAB [Concomitant]
  10. CALCIUM CARBONATE [Concomitant]
  11. ACCUPRIL [Concomitant]
  12. HYDROCHLOROTHIAZIDE [Concomitant]
  13. METFORMIN HCL [Concomitant]
  14. PROSCAR [Concomitant]
  15. MULTI-VITAMINS [Concomitant]
  16. PREGABALIN [Suspect]
     Indication: DIABETIC NEUROPATHY
     Dosage: 300MG - TID -ORAL
     Route: 048
     Dates: start: 20101203

REACTIONS (4)
  - DEHYDRATION [None]
  - HYPOTENSION [None]
  - BRADYCARDIA [None]
  - NERVOUSNESS [None]
